FAERS Safety Report 21804199 (Version 1)
Quarter: 2023Q1

REPORT INFORMATION
  Report Type: Report from Study
  Country: US (occurrence: US)
  Receive Date: 20230102
  Receipt Date: 20230102
  Transmission Date: 20230418
  Serious: Yes (Other)
  Sender: FDA-Public Use
  Company Number: US-ABBVIE-4255086

PATIENT
  Sex: Female

DRUGS (1)
  1. HUMIRA [Suspect]
     Active Substance: ADALIMUMAB
     Indication: Psoriasis
     Dosage: FORM STRENGTH- 40 MG
     Route: 058
     Dates: start: 20200408

REACTIONS (4)
  - Surgery [Unknown]
  - Psoriasis [Unknown]
  - Migraine [Unknown]
  - Back pain [Recovering/Resolving]
